FAERS Safety Report 10154133 (Version 1)
Quarter: 2014Q2

REPORT INFORMATION
  Report Type: Spontaneous
  Country: DE (occurrence: None)
  Receive Date: 20140502
  Receipt Date: 20140502
  Transmission Date: 20141212
  Serious: Yes (Hospitalization, Other)
  Sender: FDA-Public Use
  Company Number: 2014-19434

PATIENT
  Age: 83 Year
  Sex: Male

DRUGS (12)
  1. EYLEA [Suspect]
     Indication: AGE-RELATED MACULAR DEGENERATION
     Route: 031
     Dates: start: 20130720, end: 20140325
  2. HIRUDOID [Suspect]
  3. KLARICID [Suspect]
  4. OLMETEC (OLMESARTAN MEDOXOMIL) [Concomitant]
  5. CLARITHROCIN [Concomitant]
  6. SPELEAR [Concomitant]
  7. GASMOTIN (MOSAPRIDE CITRATE) [Concomitant]
  8. ALLELOCK [Concomitant]
  9. SERETIDE (FLUTICASONE PROPIONATE, SALMETEROL XINAFOATE) [Concomitant]
  10. DERMOVATE [Concomitant]
  11. MYSER [Concomitant]
  12. VEGAMOX [Concomitant]

REACTIONS (2)
  - Cerebral infarction [None]
  - Blood pressure increased [None]
